FAERS Safety Report 5515930-7 (Version None)
Quarter: 2007Q4

REPORT INFORMATION
  Report Type: 
  Country: None (occurrence: None)
  Receive Date: 20071114
  Receipt Date: 20071106
  Transmission Date: 20080405
  Serious: Yes (Hospitalization)
  Sender: FDA-Public Use
  Company Number: PHBS2007FR18503

PATIENT
  Age: 58 Year
  Sex: Male

DRUGS (9)
  1. PARLODEL [Suspect]
     Indication: PARKINSON'S DISEASE
     Dosage: 20 MG
     Route: 048
  2. MOPRAL [Concomitant]
     Dates: end: 20070601
  3. NABUTOX [Concomitant]
     Indication: BACK PAIN
     Dates: start: 20070501, end: 20070601
  4. ACETAMINOPHEN W/ PROPOXYPHENE HCL [Concomitant]
     Indication: BACK PAIN
     Dates: start: 20070501, end: 20070601
  5. DEXTROPROPOXYPHENE [Concomitant]
  6. SINEMET [Concomitant]
     Dosage: 100MG/10MG
     Route: 048
  7. SINEMET [Concomitant]
     Dosage: 250/25 MG 1 TAB
     Route: 048
  8. ARTANE [Concomitant]
     Dosage: 10 UNK, TID
  9. SELEGILINE HCL [Concomitant]
     Dosage: 1.25 MG, QD
     Route: 048

REACTIONS (6)
  - BACK PAIN [None]
  - CREATININE RENAL CLEARANCE DECREASED [None]
  - GENERAL PHYSICAL HEALTH DETERIORATION [None]
  - HYPONATRAEMIA [None]
  - INAPPROPRIATE ANTIDIURETIC HORMONE SECRETION [None]
  - WEIGHT DECREASED [None]
